FAERS Safety Report 7247215-5 (Version None)
Quarter: 2011Q1

REPORT INFORMATION
  Report Type: 
  Country: None (occurrence: None)
  Receive Date: 20110127
  Receipt Date: 20110114
  Transmission Date: 20110831
  Serious: Yes (Death)
  Sender: FDA-Public Use
  Company Number: IT-CELGENEUS-083-21880-11011474

PATIENT
  Sex: Male

DRUGS (2)
  1. VORICONAZOLE [Concomitant]
     Route: 065
     Dates: start: 20101020, end: 20101220
  2. REVLIMID [Suspect]
     Indication: CHRONIC LYMPHOCYTIC LEUKAEMIA
     Route: 048
     Dates: start: 20101215, end: 20101220

REACTIONS (3)
  - HYPOTENSION [None]
  - CONFUSIONAL STATE [None]
  - RENAL FAILURE [None]
